FAERS Safety Report 19519650 (Version 2)
Quarter: 2021Q4

REPORT INFORMATION
  Report Type: Report from Study
  Country: IT (occurrence: IT)
  Receive Date: 20210712
  Receipt Date: 20211025
  Transmission Date: 20220303
  Serious: Yes (Hospitalization)
  Sender: FDA-Public Use
  Company Number: None

PATIENT
  Age: 88 Year
  Sex: Female

DRUGS (6)
  1. QUETIAPINE [Suspect]
     Active Substance: QUETIAPINE
     Indication: Delusion
     Dates: start: 20210526, end: 20210527
  2. HALOPERIDOL [Suspect]
     Active Substance: HALOPERIDOL
     Indication: Delusion
     Route: 048
     Dates: start: 20210526, end: 20210527
  3. LORAZEPAM [Concomitant]
     Active Substance: LORAZEPAM
  4. PANTOPRAZOLE [Concomitant]
     Active Substance: PANTOPRAZOLE
  5. MELATONIN [Concomitant]
     Active Substance: MELATONIN
  6. SINEMET [Concomitant]
     Active Substance: CARBIDOPA\LEVODOPA
     Dosage: 250 MG + 25 MG TABLETS

REACTIONS (4)
  - Depressed level of consciousness [Recovering/Resolving]
  - Altered state of consciousness [Recovering/Resolving]
  - Sopor [Recovering/Resolving]
  - Drug abuse [Unknown]

NARRATIVE: CASE EVENT DATE: 20210527
